FAERS Safety Report 25718054 (Version 2)
Quarter: 2025Q4

REPORT INFORMATION
  Report Type: Report from Study
  Country: US (occurrence: US)
  Receive Date: 20250823
  Receipt Date: 20251215
  Transmission Date: 20260118
  Serious: Yes (Other)
  Sender: ABBVIE
  Company Number: US-ABBVIE-6355214

PATIENT
  Age: 75 Year
  Sex: Female

DRUGS (1)
  1. RINVOQ [Suspect]
     Active Substance: UPADACITINIB
     Indication: Dermatitis atopic
     Route: 048
     Dates: start: 20231107

REACTIONS (11)
  - Ear neoplasm malignant [Recovered/Resolved]
  - Chest discomfort [Unknown]
  - Road traffic accident [Recovering/Resolving]
  - Neck pain [Unknown]
  - Chest pain [Unknown]
  - Arthralgia [Unknown]
  - Pulmonary contusion [Recovering/Resolving]
  - Contusion [Recovering/Resolving]
  - Bone contusion [Recovering/Resolving]
  - Post-traumatic neck syndrome [Recovering/Resolving]
  - Middle insomnia [Unknown]

NARRATIVE: CASE EVENT DATE: 20250627
